FAERS Safety Report 4550349-7 (Version None)
Quarter: 2004Q4

REPORT INFORMATION
  Report Type: 
  Country: None (occurrence: None)
  Receive Date: 20041227
  Receipt Date: 20041021
  Transmission Date: 20050328
  Serious: No
  Sender: FDA-Public Use
  Company Number: US096427

PATIENT
  Age: 57 Year
  Sex: Female
  Weight: 152.6 kg

DRUGS (11)
  1. ARANESP [Suspect]
     Indication: RENAL FAILURE CHRONIC
     Dosage: 40 MCG, 1 IN 1 WEEKS, SC
     Route: 058
     Dates: start: 20040909, end: 20040927
  2. FUROSEMIDE [Concomitant]
  3. SERTARLINE HYDROCHLORIDE [Concomitant]
  4. HYDROCHLOROTHIAZIDE [Concomitant]
  5. LISINOPRIL [Concomitant]
  6. INSULIN GLARGINE [Concomitant]
  7. ACETAMINOPHEN W/ CODEINE [Concomitant]
  8. LEFLUNOMIDE [Concomitant]
  9. GLIBENCLAMIDE [Concomitant]
  10. MULTIVITAMIN [Concomitant]
  11. ENBREL [Concomitant]

REACTIONS (3)
  - CELLULITIS [None]
  - PRURITUS [None]
  - RASH [None]
